FAERS Safety Report 9241814 (Version 1)
Quarter: 2013Q2

REPORT INFORMATION
  Report Type: Spontaneous
  Country: JP (occurrence: JP)
  Receive Date: 20130419
  Receipt Date: 20130419
  Transmission Date: 20140414
  Serious: Yes (Other)
  Sender: FDA-Public Use
  Company Number: JP-NOVOPROD-374505

PATIENT
  Age: 67 Year
  Sex: Male

DRUGS (1)
  1. LEVEMIR CHU FLEXPEN [Suspect]
     Indication: PHYSICAL ASSAULT
     Dosage: UNK
     Route: 065

REACTIONS (3)
  - Victim of homicide [Unknown]
  - Intentional overdose [Unknown]
  - Hypoglycaemia [Recovered/Resolved]
